FAERS Safety Report 24888621 (Version 1)
Quarter: 2025Q1

REPORT INFORMATION
  Report Type: Spontaneous
  Country: US (occurrence: US)
  Receive Date: 20250127
  Receipt Date: 20250127
  Transmission Date: 20250409
  Serious: Yes (Other)
  Sender: STRIDES
  Company Number: None

PATIENT
  Age: 37 Year
  Sex: Female

DRUGS (4)
  1. CALCITRIOL [Suspect]
     Active Substance: CALCITRIOL
     Indication: Hypocalcaemia
     Route: 065
  2. CALCITRIOL [Suspect]
     Active Substance: CALCITRIOL
     Route: 065
  3. CALCIUM CARBONATE [Suspect]
     Active Substance: CALCIUM CARBONATE
     Indication: Hypocalcaemia
     Route: 065
  4. CALCIUM CARBONATE [Suspect]
     Active Substance: CALCIUM CARBONATE
     Route: 065

REACTIONS (3)
  - Hypercalcaemia [Recovered/Resolved]
  - Maternal exposure during breast feeding [Unknown]
  - Maternal exposure during pregnancy [Unknown]
